FAERS Safety Report 16304122 (Version 3)
Quarter: 2019Q2

REPORT INFORMATION
  Report Type: Report from Study
  Country: None (occurrence: CH)
  Receive Date: 20190513
  Receipt Date: 20190618
  Transmission Date: 20190711
  Serious: Yes (Hospitalization)
  Sender: FDA-Public Use
  Company Number: CH-ABBVIE-19S-151-2780287-00

PATIENT
  Sex: Female

DRUGS (3)
  1. DUODOPA [Suspect]
     Active Substance: CARBIDOPA\LEVODOPA
     Indication: PARKINSON^S DISEASE
     Dosage: 24 H THERAPY
     Route: 050
     Dates: start: 20160825, end: 20170502
  2. DUODOPA [Suspect]
     Active Substance: CARBIDOPA\LEVODOPA
     Dosage: MD:6.8 ML, CRD:3 ML/H, CRN1.6 ML/H, ED: 1.6 ML?24 H THERAPY
     Route: 050
     Dates: start: 20170502, end: 20180307
  3. DUODOPA [Suspect]
     Active Substance: CARBIDOPA\LEVODOPA
     Dosage: MD: 6.8 ML, CRD:2.8 ML/H, CRN:1.6 ML/H, ED1.6 ML?24 H THERAPY
     Route: 050
     Dates: start: 20180307

REACTIONS (7)
  - Stoma site infection [Unknown]
  - Pulmonary embolism [Recovered/Resolved]
  - Dysstasia [Unknown]
  - Stoma site abscess [Unknown]
  - Wheelchair user [Not Recovered/Not Resolved]
  - Stoma site discharge [Unknown]
  - Thrombosis [Recovered/Resolved]
